FAERS Safety Report 16383618 (Version 2)
Quarter: 2019Q2

REPORT INFORMATION
  Report Type: Spontaneous
  Country: BR (occurrence: BR)
  Receive Date: 20190603
  Receipt Date: 20190614
  Transmission Date: 20190711
  Serious: No
  Sender: FDA-Public Use
  Company Number: BR-ABBVIE-19P-020-2755008-00

PATIENT
  Age: 42 Year
  Sex: Female
  Weight: 72 kg

DRUGS (1)
  1. SYNTHROID [Suspect]
     Active Substance: LEVOTHYROXINE SODIUM
     Indication: THYROID DISORDER
     Route: 048

REACTIONS (9)
  - Headache [Not Recovered/Not Resolved]
  - Arrhythmia [Not Recovered/Not Resolved]
  - Product physical issue [Unknown]
  - Drug ineffective [Not Recovered/Not Resolved]
  - Product colour issue [Unknown]
  - Tremor [Not Recovered/Not Resolved]
  - Product complaint [Unknown]
  - Benign hepatic neoplasm [Recovering/Resolving]
  - Nausea [Not Recovered/Not Resolved]

NARRATIVE: CASE EVENT DATE: 20190413
